FAERS Safety Report 9425260 (Version 3)
Quarter: 2013Q4

REPORT INFORMATION
  Report Type: Spontaneous
  Country: US (occurrence: US)
  Receive Date: 20130729
  Receipt Date: 20131018
  Transmission Date: 20140711
  Serious: Yes (Hospitalization, Other)
  Sender: FDA-Public Use
  Company Number: US-TEVA-421815USA

PATIENT
  Age: 26 Year
  Sex: Female
  Weight: 64.01 kg

DRUGS (10)
  1. PARAGARD 380A [Suspect]
     Indication: CONTRACEPTION
     Route: 015
     Dates: start: 20120224, end: 20130719
  2. YAZ [Concomitant]
     Indication: ACNE
     Dosage: 3 MG - 20 MCG
  3. SINGULAIR [Concomitant]
     Indication: SEASONAL ALLERGY
     Dosage: 10 MG
  4. RETIN-A [Concomitant]
     Indication: ACNE
     Dosage: 0.025%
  5. KETOCONAZOLE [Concomitant]
     Indication: ACNE
     Dosage: 1%
  6. CLINDAMYCIN [Concomitant]
     Indication: ACNE
     Dosage: 1%
  7. CEFADROXIL [Concomitant]
     Dosage: 500 MG
  8. TOPAMAX [Concomitant]
     Indication: CONVULSION
     Dosage: 100 MG
  9. MIDRIN [Concomitant]
     Indication: TENSION HEADACHE
     Dosage: 325 MG-65MG-100MG
  10. MOTRIN [Concomitant]
     Indication: HEADACHE
     Dosage: 600 MG

REACTIONS (6)
  - Medical device complication [Not Recovered/Not Resolved]
  - Embedded device [Not Recovered/Not Resolved]
  - Medical device complication [Recovered/Resolved with Sequelae]
  - Device breakage [Recovered/Resolved with Sequelae]
  - Device expulsion [Recovered/Resolved with Sequelae]
  - Actinomyces test positive [Unknown]
